FAERS Safety Report 5664263-7 (Version None)
Quarter: 2008Q1

REPORT INFORMATION
  Report Type: 
  Country: None (occurrence: None)
  Receive Date: 20080314
  Receipt Date: 20080311
  Transmission Date: 20080703
  Serious: Yes (Hospitalization)
  Sender: FDA-Public Use
  Company Number: AU-ASTRAZENECA-2008AP01864

PATIENT
  Age: 21559 Day
  Sex: Male

DRUGS (6)
  1. MEROPENEM [Suspect]
     Route: 048
     Dates: start: 20070617, end: 20070620
  2. AMBISOME [Suspect]
     Route: 042
     Dates: start: 20070617, end: 20070619
  3. CYTARABINE [Suspect]
     Indication: MYELOID LEUKAEMIA
     Route: 042
     Dates: start: 20070607, end: 20070616
  4. ETOPOSIDE [Suspect]
     Indication: MYELOID LEUKAEMIA
     Route: 042
     Dates: start: 20070607, end: 20070613
  5. IDARUBICIN HCL [Suspect]
     Indication: MYELOID LEUKAEMIA
     Route: 042
     Dates: start: 20070610
  6. VANCOMYCIN HYDROCHLORIDE [Concomitant]
     Route: 042
     Dates: start: 20070616, end: 20070620

REACTIONS (3)
  - BLOOD CREATININE INCREASED [None]
  - ENCEPHALOPATHY [None]
  - HEPATITIS ACUTE [None]
